FAERS Safety Report 6614520-2 (Version None)
Quarter: 2010Q1

REPORT INFORMATION
  Report Type: 
  Country: None (occurrence: None)
  Receive Date: 20100304
  Receipt Date: 20100304
  Transmission Date: 20100710
  Serious: No
  Sender: FDA-Public Use
  Company Number: None

PATIENT
  Sex: Female
  Weight: 28.2 kg

DRUGS (3)
  1. PEG-L- ASPARAGINASE (PEGASPARGASE, ONCOSPAR) [Suspect]
     Dosage: 2750 UNIT
     Dates: end: 20100226
  2. VINCRISTINE SULFATE [Suspect]
     Dosage: 3.4 MILLION IU
     Dates: end: 20100114
  3. MERCAPTOPURINE [Suspect]
     Dosage: 875 MG
     Dates: end: 20100127

REACTIONS (1)
  - BILIRUBIN CONJUGATED INCREASED [None]
